FAERS Safety Report 8069739-3 (Version None)
Quarter: 2012Q1

REPORT INFORMATION
  Report Type: 
  Country: None (occurrence: None)
  Receive Date: 20120125
  Receipt Date: 20120114
  Transmission Date: 20120608
  Serious: Yes (Other)
  Sender: FDA-Public Use
  Company Number: JP-BAYER-2012-004700

PATIENT
  Age: 75 Year
  Sex: Male

DRUGS (3)
  1. NEXAVAR [Suspect]
     Dosage: 400 MG, UNK
     Route: 048
  2. NEXAVAR [Suspect]
     Indication: HEPATIC NEOPLASM MALIGNANT
     Dosage: 200 MG, UNK
     Route: 048
     Dates: start: 20100401
  3. NEXAVAR [Suspect]
     Dosage: 200 MG, UNK
     Route: 048
     Dates: end: 20101001

REACTIONS (2)
  - CEREBRAL INFARCTION [None]
  - UPPER GASTROINTESTINAL HAEMORRHAGE [None]
